FAERS Safety Report 18959199 (Version 1)
Quarter: 2021Q1

REPORT INFORMATION
  Report Type: Spontaneous
  Country: US (occurrence: US)
  Receive Date: 20210302
  Receipt Date: 20210302
  Transmission Date: 20210420
  Serious: Yes (Other)
  Sender: FDA-Public Use
  Company Number: US-SA-2021SA068928

PATIENT
  Age: 77 Year
  Sex: Female

DRUGS (1)
  1. DUPIXENT [Suspect]
     Active Substance: DUPILUMAB
     Indication: ASTHMA
     Dosage: 300 MG, QOW
     Route: 058
     Dates: start: 2020

REACTIONS (6)
  - Neuropathy peripheral [Unknown]
  - Injection site pain [Unknown]
  - Contraindicated product administered [Unknown]
  - Weight increased [Unknown]
  - Visual impairment [Unknown]
  - Product use issue [Unknown]

NARRATIVE: CASE EVENT DATE: 2020
